FAERS Safety Report 14858226 (Version 1)
Quarter: 2018Q2

REPORT INFORMATION
  Report Type: Spontaneous
  Country: US (occurrence: US)
  Receive Date: 20180508
  Receipt Date: 20180508
  Transmission Date: 20180711
  Serious: No
  Sender: FDA-Public Use
  Company Number: PHEH2018US016326

PATIENT
  Sex: Male

DRUGS (1)
  1. IMIPRAMINE SANDOZ [Suspect]
     Active Substance: IMIPRAMINE
     Dosage: 50 MG, QHS (ONCE A DAY AT BED TIME)
     Route: 065
     Dates: start: 1995

REACTIONS (4)
  - Feeling abnormal [Unknown]
  - Irritability [Unknown]
  - Sleep disorder [Unknown]
  - Restless legs syndrome [Unknown]
